FAERS Safety Report 24304689 (Version 2)
Quarter: 2024Q3

REPORT INFORMATION
  Report Type: Report from Study
  Country: US (occurrence: US)
  Receive Date: 20240910
  Receipt Date: 20240911
  Transmission Date: 20241017
  Serious: Yes (Hospitalization)
  Sender: JOHNSON AND JOHNSON
  Company Number: US-JNJFOC-20240905426

PATIENT
  Age: 59 Year
  Sex: Female
  Weight: 59.1 kg

DRUGS (2)
  1. EPOPROSTENOL SODIUM [Suspect]
     Active Substance: EPOPROSTENOL SODIUM
     Indication: Pulmonary arterial hypertension
     Dosage: 1.5MG VIAL INTRAVENOUS
     Route: 042
  2. ADEMPAS [Concomitant]
     Active Substance: RIOCIGUAT

REACTIONS (2)
  - Vascular device occlusion [Unknown]
  - Underdose [Unknown]

NARRATIVE: CASE EVENT DATE: 20240901
